FAERS Safety Report 8569727-4 (Version None)
Quarter: 2012Q3

REPORT INFORMATION
  Report Type: 
  Country: None (occurrence: None)
  Receive Date: 20120803
  Receipt Date: 20120206
  Transmission Date: 20120928
  Serious: No
  Sender: FDA-Public Use
  Company Number: US-ABBOTT-12P-163-0901890-00

PATIENT
  Sex: Male
  Weight: 83.99 kg

DRUGS (4)
  1. NIASPAN [Suspect]
     Dosage: 1000 MG NIGHTLY AT 7 PM
     Dates: start: 20120101
  2. NIASPAN [Suspect]
     Indication: BLOOD TRIGLYCERIDES INCREASED
     Dosage: EVERY NIGHT
     Dates: start: 20110201, end: 20120101
  3. VIMOPO [Concomitant]
     Indication: PRODUCT USED FOR UNKNOWN INDICATION
     Dosage: 500 MG DAILY
  4. ASPIRIN [Concomitant]
     Indication: PRODUCT USED FOR UNKNOWN INDICATION

REACTIONS (1)
  - PRURITUS [None]
